FAERS Safety Report 9606949 (Version 2)
Quarter: 2013Q4

REPORT INFORMATION
  Report Type: Spontaneous
  Country: US (occurrence: US)
  Receive Date: 20131008
  Receipt Date: 20131105
  Transmission Date: 20140711
  Serious: Yes (Death)
  Sender: FDA-Public Use
  Company Number: US-TEVA-436124USA

PATIENT
  Age: 67 Year
  Sex: Female

DRUGS (1)
  1. FENTORA [Suspect]
     Indication: PAIN

REACTIONS (2)
  - Death [Fatal]
  - Adverse event [Unknown]
